FAERS Safety Report 10025050 (Version 1)
Quarter: 2014Q1

REPORT INFORMATION
  Report Type: Report from Study
  Country: TR (occurrence: None)
  Receive Date: 20140205
  Receipt Date: 20140205
  Transmission Date: 20141002
  Serious: Yes (Other)
  Sender: FDA-Public Use
  Company Number: 2012SA049577

PATIENT
  Age: 41 Year
  Sex: Male
  Weight: 78.5 kg

DRUGS (2)
  1. TERIFLUNOMIDE [Suspect]
     Indication: MULTIPLE SCLEROSIS RELAPSE
     Route: 048
     Dates: start: 20120213
  2. VITAMINS WITH MINERALS [Concomitant]

REACTIONS (4)
  - Blood creatine phosphokinase increased [None]
  - Alanine aminotransferase increased [None]
  - Aspartate aminotransferase increased [None]
  - Blood lactate dehydrogenase increased [None]
